FAERS Safety Report 15800718 (Version 2)
Quarter: 2019Q1

REPORT INFORMATION
  Report Type: Spontaneous
  Country: AT (occurrence: AT)
  Receive Date: 20190109
  Receipt Date: 20190109
  Transmission Date: 20190417
  Serious: Yes (Hospitalization)
  Sender: FDA-Public Use
  Company Number: AT-ACCORD-101024

PATIENT
  Age: 64 Year
  Sex: Male

DRUGS (1)
  1. ZOLEDRONIC ACID [Suspect]
     Active Substance: ZOLEDRONIC ACID
     Indication: PRODUCT USED FOR UNKNOWN INDICATION
     Dosage: UNK, MONTHLY
     Route: 065

REACTIONS (3)
  - Osteonecrosis of jaw [Recovering/Resolving]
  - Purulent discharge [Recovering/Resolving]
  - Pain in jaw [Recovering/Resolving]
